FAERS Safety Report 7255655-3 (Version None)
Quarter: 2011Q1

REPORT INFORMATION
  Report Type: 
  Country: None (occurrence: None)
  Receive Date: 20110129
  Receipt Date: 20100826
  Transmission Date: 20110831
  Serious: Yes (Other)
  Sender: FDA-Public Use
  Company Number: US-ABBOTT-10P-163-0666835-00

PATIENT
  Age: 68 Year
  Sex: Female

DRUGS (6)
  1. NORTRIPTYLINE [Concomitant]
     Indication: STRESS
  2. HUMIRA [Suspect]
     Indication: RHEUMATOID ARTHRITIS
     Dates: start: 20080826
  3. VAGIFEN [Concomitant]
     Indication: HORMONE REPLACEMENT THERAPY
  4. SYNTHROID [Concomitant]
     Indication: HYPOTHYROIDISM
  5. NORTRIPTYLINE [Concomitant]
     Indication: BLADDER PAIN
  6. ZETIA [Concomitant]
     Indication: BLOOD CHOLESTEROL INCREASED

REACTIONS (2)
  - CYSTITIS INTERSTITIAL [None]
  - BASAL CELL CARCINOMA [None]
